FAERS Safety Report 22161326 (Version 2)
Quarter: 2023Q2

REPORT INFORMATION
  Report Type: Report from Study
  Country: US (occurrence: US)
  Receive Date: 20230331
  Receipt Date: 20230411
  Transmission Date: 20230721
  Serious: Yes (Death, Hospitalization, Other)
  Sender: FDA-Public Use
  Company Number: US-SEATTLE GENETICS-2023SGN01810

PATIENT
  Age: 58 Year
  Sex: Female

DRUGS (4)
  1. TUCATINIB [Suspect]
     Active Substance: TUCATINIB
     Indication: Breast cancer female
     Dosage: UNK
     Route: 065
     Dates: start: 20230130
  2. TUCATINIB [Suspect]
     Active Substance: TUCATINIB
     Dosage: UNK
     Route: 065
  3. CAPECITABINE [Suspect]
     Active Substance: CAPECITABINE
     Indication: Breast cancer female
     Route: 065
  4. TRASTUZUMAB [Concomitant]
     Active Substance: TRASTUZUMAB
     Indication: Breast cancer female
     Dosage: UNK
     Route: 065

REACTIONS (8)
  - Death [Fatal]
  - Pericardial effusion [Unknown]
  - Pulmonary oedema [Unknown]
  - Dizziness [Unknown]
  - Hypotension [Unknown]
  - Impaired work ability [Unknown]
  - Loss of personal independence in daily activities [Unknown]
  - Diarrhoea [Recovering/Resolving]

NARRATIVE: CASE EVENT DATE: 20230101
